FAERS Safety Report 5796766-9 (Version None)
Quarter: 2008Q3

REPORT INFORMATION
  Report Type: 
  Country: None (occurrence: None)
  Receive Date: 20080701
  Receipt Date: 20080619
  Transmission Date: 20090109
  Serious: Yes (Hospitalization)
  Sender: FDA-Public Use
  Company Number: FR-ROCHE-571646

PATIENT
  Sex: Male

DRUGS (6)
  1. PEG-INTERFERON A-2A (RO 25-8310) [Suspect]
     Indication: HEPATITIS C
     Dosage: FORMULATION: INJECTABLE SOLUTION
     Route: 058
     Dates: start: 20070902
  2. RIBAVIRIN [Suspect]
     Indication: HEPATITIS C
     Route: 048
     Dates: start: 20070902
  3. SEROPLEX [Concomitant]
     Route: 048
  4. ZYPREXA [Concomitant]
     Route: 048
  5. REYATAZ [Concomitant]
     Indication: HIV INFECTION
     Route: 048
  6. NORVIR [Concomitant]
     Indication: HIV INFECTION
     Route: 048

REACTIONS (2)
  - COMA [None]
  - CONVULSION [None]
